FAERS Safety Report 8222128-0 (Version None)
Quarter: 2012Q1

REPORT INFORMATION
  Report Type: 
  Country: None (occurrence: None)
  Receive Date: 20120314
  Receipt Date: 20120305
  Transmission Date: 20120608
  Serious: Yes (Life-Threatening, Hospitalization)
  Sender: FDA-Public Use
  Company Number: ACO_29593_2012

PATIENT
  Age: 47 Year
  Sex: Female
  Weight: 61.7 kg

DRUGS (2)
  1. DETROL LA [Concomitant]
  2. AMPYRA [Suspect]
     Indication: GAIT DISTURBANCE
     Dosage: 10 MG, BID, ORAL
     Route: 048
     Dates: start: 20100601, end: 20110608

REACTIONS (1)
  - VOLVULUS [None]
